FAERS Safety Report 6051482-3 (Version None)
Quarter: 2009Q1

REPORT INFORMATION
  Report Type: 
  Country: None (occurrence: None)
  Receive Date: 20090126
  Receipt Date: 20090116
  Transmission Date: 20090719
  Serious: Yes (Hospitalization)
  Sender: FDA-Public Use
  Company Number: A0763857A

PATIENT
  Age: 82 Year
  Sex: Female
  Weight: 85.4 kg

DRUGS (2)
  1. ROSIGLITAZONE [Suspect]
     Route: 048
     Dates: start: 20080930
  2. ARICEPT [Concomitant]
     Dosage: 10MG PER DAY
     Route: 048
     Dates: start: 20061101

REACTIONS (6)
  - ASTHENIA [None]
  - ATRIAL FIBRILLATION [None]
  - BLOOD PRESSURE IMMEASURABLE [None]
  - COLD SWEAT [None]
  - INCOHERENT [None]
  - PULSE ABSENT [None]
